FAERS Safety Report 7096816-6 (Version None)
Quarter: 2010Q4

REPORT INFORMATION
  Report Type: 
  Country: None (occurrence: None)
  Receive Date: 20101111
  Receipt Date: 20101102
  Transmission Date: 20110411
  Serious: Yes (Other)
  Sender: FDA-Public Use
  Company Number: DE-PFIZER INC-2010139432

PATIENT
  Age: 70 Year
  Sex: Male

DRUGS (1)
  1. SORTIS [Suspect]
     Indication: ARTERIAL STENOSIS
     Dosage: 40 MG/DAY
     Dates: start: 20090101

REACTIONS (2)
  - BLOOD CREATINE PHOSPHOKINASE INCREASED [None]
  - BLOOD CREATINE PHOSPHOKINASE MB INCREASED [None]
